FAERS Safety Report 15659590 (Version 3)
Quarter: 2020Q1

REPORT INFORMATION
  Report Type: Report from Study
  Country: IT (occurrence: IT)
  Receive Date: 20181127
  Receipt Date: 20200320
  Transmission Date: 20200409
  Serious: Yes (Hospitalization, Other)
  Sender: FDA-Public Use
  Company Number: IT-INCYTE CORPORATION-2018IN011935

PATIENT

DRUGS (1)
  1. JAKAVI [Suspect]
     Active Substance: RUXOLITINIB
     Indication: MYELOFIBROSIS
     Dosage: 40 MG, UNK
     Route: 048
     Dates: start: 20170327

REACTIONS (3)
  - Chest X-ray abnormal [Unknown]
  - Enterocolitis [Recovered/Resolved]
  - Enterocolitis [Unknown]

NARRATIVE: CASE EVENT DATE: 20180908
